FAERS Safety Report 12241415 (Version 1)
Quarter: 2016Q2

REPORT INFORMATION
  Report Type: Spontaneous
  Country: US (occurrence: US)
  Receive Date: 20160406
  Receipt Date: 20160406
  Transmission Date: 20160815
  Serious: No
  Sender: FDA-Public Use
  Company Number: US-PFIZER INC-2016172785

PATIENT
  Sex: Male

DRUGS (2)
  1. PRISTIQ EXTENDED-RELEASE [Suspect]
     Active Substance: DESVENLAFAXINE SUCCINATE
     Dosage: 50 MG, DAILY
  2. PRISTIQ EXTENDED-RELEASE [Suspect]
     Active Substance: DESVENLAFAXINE SUCCINATE
     Dosage: 25 MG, ALTERNATE DAY
     Dates: end: 20160310

REACTIONS (1)
  - Drug withdrawal syndrome [Unknown]
